FAERS Safety Report 19584939 (Version 1)
Quarter: 2021Q3

REPORT INFORMATION
  Report Type: Report from Study
  Country: US (occurrence: US)
  Receive Date: 20210720
  Receipt Date: 20210720
  Transmission Date: 20211014
  Serious: Yes (Other)
  Sender: FDA-Public Use
  Company Number: US-ASTELLAS-2020US004986

PATIENT
  Age: 86 Year
  Sex: Male

DRUGS (2)
  1. ENZALUTAMIDE [Suspect]
     Active Substance: ENZALUTAMIDE
     Indication: HORMONE-REFRACTORY PROSTATE CANCER
     Dosage: 160 MG, ONCE DAILY  1 PM IN AFTERNOON
     Route: 048
     Dates: start: 201911
  2. ENZALUTAMIDE [Suspect]
     Active Substance: ENZALUTAMIDE
     Indication: PROSTATE CANCER

REACTIONS (5)
  - COVID-19 [Unknown]
  - Hypersomnia [Unknown]
  - Fatigue [Unknown]
  - Condition aggravated [Unknown]
  - Nephropathy [Unknown]

NARRATIVE: CASE EVENT DATE: 201911
